FAERS Safety Report 6981429-4 (Version None)
Quarter: 2010Q3

REPORT INFORMATION
  Report Type: 
  Country: None (occurrence: None)
  Receive Date: 20100914
  Receipt Date: 20100224
  Transmission Date: 20110219
  Serious: No
  Sender: FDA-Public Use
  Company Number: US-BRISTOL-MYERS SQUIBB COMPANY-14991913

PATIENT
  Sex: Male

DRUGS (1)
  1. MEGACE [Suspect]
     Dates: start: 20100101

REACTIONS (2)
  - MUSCULAR WEAKNESS [None]
  - OEDEMA [None]
